FAERS Safety Report 5367228-8 (Version None)
Quarter: 2007Q2

REPORT INFORMATION
  Report Type: 
  Country: None (occurrence: None)
  Receive Date: 20070622
  Receipt Date: 20070618
  Transmission Date: 20071010
  Serious: Yes (Hospitalization, Other)
  Sender: FDA-Public Use
  Company Number: PHEH2005US10714

PATIENT
  Age: 68 Year
  Sex: Female

DRUGS (11)
  1. DURAGESIC-100 [Concomitant]
  2. AREDIA [Suspect]
     Indication: METASTASES TO BONE
     Dosage: 90 MG, QMO PIGGYBACK
     Route: 041
     Dates: start: 20010201, end: 20020501
  3. XALATAN [Concomitant]
  4. ALBUTEROL [Concomitant]
  5. ALLEGRA [Concomitant]
  6. ACCUPRIL [Concomitant]
  7. ARIMIDEX [Concomitant]
     Dates: start: 20010201
  8. NORVASC [Concomitant]
  9. PAXIL [Concomitant]
  10. VICODIN [Concomitant]
  11. ALPHAGAN [Concomitant]

REACTIONS (49)
  - ABSCESS [None]
  - ABSCESS DRAINAGE [None]
  - ANKLE FRACTURE [None]
  - ASTHENIA [None]
  - BACTERIAL INFECTION [None]
  - BONE DEBRIDEMENT [None]
  - BONE LESION [None]
  - CARBOHYDRATE ANTIGEN 27.29 INCREASED [None]
  - CELLULITIS [None]
  - COMPUTERISED TOMOGRAM ABNORMAL [None]
  - CONSTIPATION [None]
  - CYST REMOVAL [None]
  - DIZZINESS [None]
  - DYSPEPSIA [None]
  - DYSURIA [None]
  - ERYTHEMA [None]
  - FALL [None]
  - FISTULA [None]
  - GASTROINTESTINAL DISORDER [None]
  - HAND FRACTURE [None]
  - HYPERBARIC OXYGEN THERAPY [None]
  - HYPOAESTHESIA FACIAL [None]
  - INDURATION [None]
  - INFLAMMATION [None]
  - JAW FRACTURE [None]
  - MACROCYTOSIS [None]
  - MALIGNANT NEOPLASM PROGRESSION [None]
  - MEAN CELL VOLUME ABNORMAL [None]
  - MICTURITION URGENCY [None]
  - MUSCLE STRAIN [None]
  - NECK PAIN [None]
  - OEDEMA PERIPHERAL [None]
  - ORAL DISCOMFORT [None]
  - ORTHOSIS USER [None]
  - OSTEOMYELITIS CHRONIC [None]
  - OSTEOMYELITIS DRAINAGE [None]
  - OSTEONECROSIS [None]
  - OSTEOPOROSIS [None]
  - PAIN IN JAW [None]
  - PATHOLOGICAL FRACTURE [None]
  - PERIODONTITIS [None]
  - PYREXIA [None]
  - STOMACH DISCOMFORT [None]
  - SWELLING [None]
  - TOOTH DISORDER [None]
  - TOOTH EXTRACTION [None]
  - URINARY TRACT INFECTION [None]
  - WOUND DEBRIDEMENT [None]
  - WOUND SECRETION [None]
